FAERS Safety Report 8845009 (Version 8)
Quarter: 2012Q4

REPORT INFORMATION
  Report Type: 
  Country: JP (occurrence: JP)
  Receive Date: 20121017
  Receipt Date: 20121221
  Transmission Date: 20130627
  Serious: Yes (Other)
  Sender: FDA-Public Use
  Company Number: JP-PFIZER INC-2012256780

PATIENT
  Age: 45 Year
  Sex: Male
  Weight: 69.7 kg

DRUGS (15)
  1. CHAMPIX [Suspect]
     Indication: SMOKING CESSATION THERAPY
     Dosage: 0.5 mg, 1x/day
     Route: 048
     Dates: start: 20120911, end: 20120913
  2. CHAMPIX [Suspect]
     Dosage: 0.5 mg, 2x/day
     Route: 048
     Dates: start: 20120914, end: 20120917
  3. CHAMPIX [Suspect]
     Dosage: 1.0 mg, 2x/day
     Route: 048
     Dates: start: 20120918, end: 20120920
  4. OLMETEC [Suspect]
     Indication: HYPERTENSION
     Dosage: 20 mg, 1x/day
     Route: 048
     Dates: start: 20120214
  5. AMLODIPINE OD [Suspect]
     Indication: HYPERTENSION
     Dosage: 5 mg, 1x/day
     Route: 048
     Dates: start: 20120420
  6. LUPRAC [Suspect]
     Indication: EDEMA
     Dosage: 4 mg, 2x/day
     Route: 048
     Dates: start: 20120725
  7. LENDORMIN [Suspect]
     Indication: INSOMNIA
     Dosage: 0.25 mg, 1x/day
     Route: 048
     Dates: start: 20120725
  8. CALONAL [Suspect]
     Indication: PYREXIA
     Dosage: 200 mg, as needed
     Route: 048
     Dates: start: 20120718
  9. LOXOPROFEN [Suspect]
     Indication: PAIN
     Dosage: 60 mg, as needed
     Route: 048
     Dates: start: 20120814
  10. WARFARIN [Suspect]
     Indication: THROMBOSIS PROPHYLAXIS
     Dosage: 5 mg, 1x/day
     Route: 048
     Dates: start: 20120816, end: 20120830
  11. FLUITRAN [Concomitant]
     Dosage: UNK
     Route: 048
  12. ALDACTONE [Concomitant]
     Dosage: UNK
     Route: 048
  13. UBIRON [Concomitant]
     Dosage: UNK
     Route: 048
  14. ASTOMIN [Concomitant]
     Dosage: UNK
     Route: 048
  15. HUMALOG MIX [Concomitant]
     Dosage: UNK

REACTIONS (7)
  - Lymph node tuberculosis [Unknown]
  - Liver disorder [Unknown]
  - Renal failure chronic [Unknown]
  - Jaundice [Recovering/Resolving]
  - Blood bilirubin increased [Recovering/Resolving]
  - Pain in extremity [Unknown]
  - Nightmare [Recovered/Resolved]
